FAERS Safety Report 18257353 (Version 1)
Quarter: 2020Q3

REPORT INFORMATION
  Report Type: Spontaneous
  Country: PL (occurrence: PL)
  Receive Date: 20200911
  Receipt Date: 20200911
  Transmission Date: 20201103
  Serious: Yes (Other)
  Sender: FDA-Public Use
  Company Number: PL-TEVA-2020-PL-1826493

PATIENT
  Age: 43 Year
  Sex: Male

DRUGS (2)
  1. RELTEBON [Suspect]
     Active Substance: OXYCODONE HYDROCHLORIDE
     Dosage: THIS MORNING HE TOOK 40 MG FOR THE FIRST TIME
     Route: 065
     Dates: start: 20200903
  2. RELTEBON [Suspect]
     Active Substance: OXYCODONE HYDROCHLORIDE
     Indication: ANKYLOSING SPONDYLITIS
     Dosage: DOSES OF 10 MG AND 20 MG
     Route: 065

REACTIONS (7)
  - Loss of consciousness [Unknown]
  - Speech disorder [Unknown]
  - Time perception altered [Unknown]
  - Thirst [Unknown]
  - Urinary retention [Unknown]
  - Confusional state [Unknown]
  - Headache [Unknown]

NARRATIVE: CASE EVENT DATE: 20200903
